FAERS Safety Report 10784495 (Version 1)
Quarter: 2015Q1

REPORT INFORMATION
  Report Type: Spontaneous
  Country: US (occurrence: None)
  Receive Date: 20150209
  Receipt Date: 20150209
  Transmission Date: 20150721
  Serious: No
  Sender: FDA-Public Use
  Company Number: None

PATIENT

DRUGS (1)
  1. MESNA B.BRAUN [Suspect]
     Active Substance: MESNA

REACTIONS (5)
  - Nausea [None]
  - Product container issue [None]
  - Product quality issue [None]
  - Poor quality drug administered [None]
  - Product odour abnormal [None]
